FAERS Safety Report 19211941 (Version 1)
Quarter: 2021Q2

REPORT INFORMATION
  Report Type: Report from Study
  Country: IN (occurrence: IN)
  Receive Date: 20210504
  Receipt Date: 20210504
  Transmission Date: 20210717
  Serious: Yes (Death, Other)
  Sender: FDA-Public Use
  Company Number: NVSC2019IN042786

PATIENT
  Age: 9 Year
  Sex: Male
  Weight: 20 kg

DRUGS (5)
  1. PANIMUN BIORAL [Concomitant]
     Active Substance: CYCLOSPORINE
     Indication: PRODUCT USED FOR UNKNOWN INDICATION
     Dosage: 75 MG
     Route: 065
  2. REVOLADE [Suspect]
     Active Substance: ELTROMBOPAG OLAMINE
     Indication: APLASTIC ANAEMIA
     Dosage: UNK
     Route: 065
     Dates: start: 20190729
  3. REVOLADE [Suspect]
     Active Substance: ELTROMBOPAG OLAMINE
     Dosage: 50 MG, QD
     Route: 048
     Dates: start: 20190826, end: 20191110
  4. REVOLADE [Suspect]
     Active Substance: ELTROMBOPAG OLAMINE
     Dosage: 75 MG, QD
     Route: 048
     Dates: start: 20191111, end: 20210402
  5. FOLVITE [Concomitant]
     Active Substance: FOLIC ACID
     Indication: PRODUCT USED FOR UNKNOWN INDICATION
     Dosage: 5 MG, QD
     Route: 065

REACTIONS (6)
  - Red blood cell count decreased [Fatal]
  - Disease progression [Fatal]
  - White blood cell count decreased [Fatal]
  - Platelet count decreased [Fatal]
  - Aplastic anaemia [Fatal]
  - Haemoglobin decreased [Fatal]

NARRATIVE: CASE EVENT DATE: 20191111
